APPROVED DRUG PRODUCT: SEPHIENCE
Active Ingredient: SEPIAPTERIN
Strength: 1GM/PACKET
Dosage Form/Route: POWDER;ORAL
Application: N219666 | Product #002
Applicant: PTC THERAPEUTICS INC
Approved: Jul 28, 2025 | RLD: Yes | RS: Yes | Type: RX

PATENTS:
Patent 12257252 | Expires: Mar 6, 2042
Patent 12213982 | Expires: Sep 4, 2038
Patent 11752154 | Expires: Sep 4, 2038
Patent 11072614 | Expires: Apr 16, 2038

EXCLUSIVITY:
Code: NCE | Date: Jul 28, 2030